FAERS Safety Report 22724708 (Version 7)
Quarter: 2025Q3

REPORT INFORMATION
  Report Type: Spontaneous
  Country: KR (occurrence: KR)
  Receive Date: 20230719
  Receipt Date: 20250721
  Transmission Date: 20251021
  Serious: Yes (Disabling, Other)
  Sender: MYLAN
  Company Number: KR-MYLANLABS-2023M1076099

PATIENT
  Sex: Female

DRUGS (4)
  1. LYRICA [Suspect]
     Active Substance: PREGABALIN
     Indication: Muscle spasms
     Dosage: 150 MILLIGRAM, QD
     Dates: start: 2019
  2. Climeril [Concomitant]
     Indication: Diabetes mellitus
  3. FENOFIBRATE\PRAVASTATIN [Concomitant]
     Active Substance: FENOFIBRATE\PRAVASTATIN
     Indication: Hyperlipidaemia
  4. METFORMIN HYDROCHLORIDE [Concomitant]
     Active Substance: METFORMIN HYDROCHLORIDE
     Indication: Diabetes mellitus

REACTIONS (8)
  - Limb discomfort [Unknown]
  - Renal impairment [Unknown]
  - Glycosylated haemoglobin increased [Unknown]
  - Urine abnormality [Unknown]
  - Pollakiuria [Unknown]
  - Dyspnoea [Recovered/Resolved]
  - Product dose omission issue [Unknown]
  - Inappropriate schedule of product administration [Unknown]
